FAERS Safety Report 8172926-7 (Version None)
Quarter: 2012Q1

REPORT INFORMATION
  Report Type: 
  Country: None (occurrence: None)
  Receive Date: 20120229
  Receipt Date: 20120220
  Transmission Date: 20120608
  Serious: Yes (Death, Hospitalization)
  Sender: FDA-Public Use
  Company Number: FR-BRISTOL-MYERS SQUIBB COMPANY-16408544

PATIENT
  Age: 90 Year
  Sex: Female

DRUGS (9)
  1. IMOVANE [Concomitant]
  2. CELECTOL [Concomitant]
  3. TRANDOLAPRIL [Concomitant]
  4. DEBRIDAT [Concomitant]
  5. DIGOXIN [Concomitant]
  6. ATHYMIL [Concomitant]
  7. SPASFON [Concomitant]
  8. COUMADIN [Suspect]
     Indication: ATRIAL FIBRILLATION
     Route: 048
  9. NEXIUM [Concomitant]

REACTIONS (8)
  - MULTI-ORGAN FAILURE [None]
  - ANAEMIA [None]
  - RHABDOMYOLYSIS [None]
  - DEATH [None]
  - FALL [None]
  - HYPOTHERMIA [None]
  - INTERNATIONAL NORMALISED RATIO INCREASED [None]
  - LACTIC ACIDOSIS [None]
